FAERS Safety Report 5847145-7 (Version None)
Quarter: 2008Q3

REPORT INFORMATION
  Report Type: 
  Country: None (occurrence: None)
  Receive Date: 20080815
  Receipt Date: 20080801
  Transmission Date: 20090109
  Serious: Yes (Hospitalization)
  Sender: FDA-Public Use
  Company Number: US-GENENTECH-266186

PATIENT

DRUGS (3)
  1. BEVACIZUMAB [Suspect]
     Indication: BREAST CANCER
     Dosage: 10 MG/KG, DAYS 2+16
     Route: 042
     Dates: start: 20080604
  2. SAHA [Suspect]
     Indication: BREAST CANCER
     Dosage: 300 MG, BID
     Route: 048
     Dates: start: 20080603
  3. TAXOL [Suspect]
     Indication: BREAST CANCER
     Dosage: 90 MG/M2, UNK
     Route: 042
     Dates: start: 20080604

REACTIONS (12)
  - ANOREXIA [None]
  - DEHYDRATION [None]
  - DIARRHOEA [None]
  - DIZZINESS [None]
  - DYSPNOEA [None]
  - FATIGUE [None]
  - HEADACHE [None]
  - HYPOKALAEMIA [None]
  - LETHARGY [None]
  - MALAISE [None]
  - MUSCULAR WEAKNESS [None]
  - PAIN [None]
